FAERS Safety Report 9377500 (Version 1)
Quarter: 2013Q3

REPORT INFORMATION
  Report Type: Spontaneous
  Country: US (occurrence: US)
  Receive Date: 20130701
  Receipt Date: 20130701
  Transmission Date: 20140515
  Serious: Yes (Hospitalization, Other)
  Sender: FDA-Public Use
  Company Number: US-BAYER-2013-077695

PATIENT
  Age: 55 Year
  Sex: Male
  Weight: 113.38 kg

DRUGS (1)
  1. ALEVE CAPLET [Suspect]
     Dosage: 2 DF, QD
     Route: 048
     Dates: start: 201212, end: 20130614

REACTIONS (7)
  - Ulcer [None]
  - Faeces discoloured [None]
  - Incorrect drug administration duration [None]
  - Asthenia [Recovered/Resolved]
  - Abasia [Recovered/Resolved]
  - Blood pressure abnormal [Recovered/Resolved]
  - Blood count abnormal [Recovered/Resolved]
